FAERS Safety Report 18666550 (Version 1)
Quarter: 2020Q4

REPORT INFORMATION
  Report Type: Spontaneous
  Country: GB (occurrence: GB)
  Receive Date: 20201227
  Receipt Date: 20201227
  Transmission Date: 20210114
  Serious: Yes (Life-Threatening)
  Sender: FDA-Public Use
  Company Number: GB-TEVA-2020-GB-1861561

PATIENT
  Age: 49 Year
  Sex: Female
  Weight: 150 kg

DRUGS (16)
  1. OXYCODONE [Suspect]
     Active Substance: OXYCODONE
     Indication: PAIN
     Dosage: 40MG TWICE DAILY LONG ACTING AND 20MG FIVE TIMES DAILY , UNIT DOSE :  180 MG
     Route: 048
     Dates: start: 20160101
  2. PARACETAMOL [Concomitant]
     Active Substance: ACETAMINOPHEN
  3. PREGABALIN. [Concomitant]
     Active Substance: PREGABALIN
  4. EURAX [Concomitant]
     Active Substance: CROTAMITON
  5. DOXAZOSIN [Concomitant]
     Active Substance: DOXAZOSIN MESYLATE
  6. AZITHROMYCIN ANHYDROUS. [Concomitant]
     Active Substance: AZITHROMYCIN ANHYDROUS
  7. FOSTAIR [Concomitant]
     Active Substance: BECLOMETHASONE\FORMOTEROL
  8. RAMIPRIL. [Suspect]
     Active Substance: RAMIPRIL
     Indication: HYPERTENSION
     Dosage: UNIT DOSE : 5 MG
     Route: 048
     Dates: start: 20201116, end: 20201123
  9. CARBOCISTEINE [Concomitant]
     Active Substance: CARBOCYSTEINE
  10. SERTRALINE [Concomitant]
     Active Substance: SERTRALINE HYDROCHLORIDE
  11. SALBUTAMOL [Concomitant]
     Active Substance: ALBUTEROL
  12. BISACODYL. [Concomitant]
     Active Substance: BISACODYL
  13. OMEPRAZOLE. [Concomitant]
     Active Substance: OMEPRAZOLE
  14. ZOPICLONE [Concomitant]
     Active Substance: ZOPICLONE
  15. NAPROXEN. [Concomitant]
     Active Substance: NAPROXEN
  16. NORTRIPTYLINE [Concomitant]
     Active Substance: NORTRIPTYLINE

REACTIONS (2)
  - Dehydration [Unknown]
  - Respiratory arrest [Recovering/Resolving]

NARRATIVE: CASE EVENT DATE: 20201123
